FAERS Safety Report 7580606-1 (Version None)
Quarter: 2011Q2

REPORT INFORMATION
  Report Type: 
  Country: None (occurrence: None)
  Receive Date: 20110629
  Receipt Date: 20110621
  Transmission Date: 20111010
  Serious: Yes (Other)
  Sender: FDA-Public Use
  Company Number: B0729282A

PATIENT
  Sex: Female

DRUGS (1)
  1. LAPATINIB [Suspect]
     Indication: BREAST CANCER
     Dosage: 1500MGM2 PER DAY
     Route: 042

REACTIONS (3)
  - DIARRHOEA [None]
  - GASTROINTESTINAL TOXICITY [None]
  - MUCOSAL INFLAMMATION [None]
